FAERS Safety Report 18377521 (Version 1)
Quarter: 2020Q4

REPORT INFORMATION
  Report Type: Spontaneous
  Country: JP (occurrence: JP)
  Receive Date: 20201013
  Receipt Date: 20201013
  Transmission Date: 20210114
  Serious: Yes (Other)
  Sender: FDA-Public Use
  Company Number: JP-JNJFOC-20201011860

PATIENT
  Age: 84 Year
  Sex: Male
  Weight: 40 kg

DRUGS (1)
  1. XARELTO [Suspect]
     Active Substance: RIVAROXABAN
     Indication: ATRIAL FIBRILLATION
     Route: 048

REACTIONS (4)
  - Haemorrhage subcutaneous [Unknown]
  - Product use issue [Unknown]
  - Labelled drug-disease interaction medication error [Unknown]
  - Incorrect dose administered [Unknown]
